FAERS Safety Report 21293237 (Version 1)
Quarter: 2022Q3

REPORT INFORMATION
  Report Type: Spontaneous
  Country: DE (occurrence: DE)
  Receive Date: 20220905
  Receipt Date: 20220905
  Transmission Date: 20221027
  Serious: Yes (Other)
  Sender: FDA-Public Use
  Company Number: DE-NOVARTISPH-NVSC2022DE198541

PATIENT
  Sex: Male

DRUGS (3)
  1. DIOVAN [Suspect]
     Active Substance: VALSARTAN
     Indication: Product used for unknown indication
     Dosage: 120 MG, QD ((1+ ? TABLET)
     Route: 065
  2. CORTISONE [Concomitant]
     Active Substance: CORTISONE
     Indication: Neurodermatitis
     Dosage: UNK, PRN
     Route: 065
  3. EPINEPHRINE [Concomitant]
     Active Substance: EPINEPHRINE
     Indication: Product used for unknown indication
     Dosage: UNK
     Route: 065

REACTIONS (5)
  - Haemorrhage subcutaneous [Not Recovered/Not Resolved]
  - Conjunctival haemorrhage [Unknown]
  - Bernard-Soulier syndrome [Not Recovered/Not Resolved]
  - Contusion [Not Recovered/Not Resolved]
  - Wrong technique in product usage process [Not Recovered/Not Resolved]
